FAERS Safety Report 8381631-3 (Version None)
Quarter: 2012Q2

REPORT INFORMATION
  Report Type: 
  Country: None (occurrence: None)
  Receive Date: 20120524
  Receipt Date: 20120511
  Transmission Date: 20120825
  Serious: No
  Sender: FDA-Public Use
  Company Number: US-ASTRAZENECA-2012SE30674

PATIENT
  Age: 47 Year
  Sex: Male
  Weight: 124.7 kg

DRUGS (7)
  1. NEXIUM [Suspect]
     Indication: GASTRITIS
     Route: 048
  2. NEXIUM [Suspect]
     Route: 048
     Dates: start: 20120301
  3. NEXIUM [Suspect]
     Indication: HIATUS HERNIA
     Route: 048
  4. NEXIUM [Suspect]
     Route: 048
     Dates: start: 20120301
  5. NEXIUM [Suspect]
     Route: 048
     Dates: start: 20120301
  6. PERCOCET [Concomitant]
     Indication: PAIN
  7. NEXIUM [Suspect]
     Indication: GASTROOESOPHAGEAL REFLUX DISEASE
     Route: 048

REACTIONS (6)
  - ANXIETY [None]
  - OFF LABEL USE [None]
  - TREMOR [None]
  - INTENTIONAL DRUG MISUSE [None]
  - DEPRESSION [None]
  - DIZZINESS [None]
